FAERS Safety Report 23888307 (Version 1)
Quarter: 2024Q2

REPORT INFORMATION
  Report Type: Spontaneous
  Country: US (occurrence: US)
  Receive Date: 20240523
  Receipt Date: 20240523
  Transmission Date: 20240716
  Serious: No
  Sender: FDA-Public Use
  Company Number: US-LEADINGPHARMA-US-2024LEASPO00155

PATIENT
  Age: 4 Month
  Sex: Female

DRUGS (2)
  1. NYSTATIN [Suspect]
     Active Substance: NYSTATIN
     Indication: Candida infection
     Route: 048
  2. NYSTATIN [Suspect]
     Active Substance: NYSTATIN
     Route: 061

REACTIONS (1)
  - Therapeutic product effect incomplete [Unknown]
